FAERS Safety Report 8478417-8 (Version None)
Quarter: 2012Q2

REPORT INFORMATION
  Report Type: 
  Country: None (occurrence: None)
  Receive Date: 20120629
  Receipt Date: 20120619
  Transmission Date: 20120825
  Serious: Yes (Other)
  Sender: FDA-Public Use
  Company Number: BR-SANOFI-AVENTIS-2012SA044420

PATIENT
  Age: 79 Year
  Sex: Female
  Weight: 71 kg

DRUGS (19)
  1. LUFTAL [Concomitant]
  2. APRESOLINE [Concomitant]
     Indication: HYPERTENSION
  3. BENICAR [Concomitant]
     Indication: HYPERTENSION
     Dates: start: 20070101, end: 20120601
  4. DIOVAN [Concomitant]
  5. CLIKSTAR [Suspect]
     Indication: DEVICE THERAPY
     Dates: start: 20050101
  6. CLIKSTAR [Suspect]
     Dosage: 5 TIMES A DAY
     Dates: start: 20050101
  7. ATENOLOL [Concomitant]
  8. SIMVASTATIN [Concomitant]
  9. FOLIC ACID [Concomitant]
     Indication: ANAEMIA
  10. CLONAZEPAM [Suspect]
     Indication: INSOMNIA
     Dosage: 3-4 DROPS DAILY BEFORE SLEEP
     Route: 048
  11. ATENSINE [Concomitant]
     Indication: HYPERTENSION
  12. LANTUS [Suspect]
     Dosage: DOSE-24 TO 26 IU DAILY AT MORNING, STRENGTH- 3ML CARTRIDGE
     Route: 065
     Dates: start: 20050101
  13. APIDRA [Suspect]
     Dosage: DOSE AND FREQUENCY-20 IU DAILY DIVIDED IN 5 DOSES, STRENGTH- 3ML CARTRIDGE
     Route: 065
     Dates: start: 20050101
  14. OMEPRAZOLE [Concomitant]
  15. OS-CAL D [Concomitant]
     Indication: BONE DISORDER
  16. LEVOTHYROXINE SODIUM [Concomitant]
     Indication: HYPOTHYROIDISM
     Dosage: MORE THAN 20 YR
  17. EPOGEN [Concomitant]
     Indication: ANAEMIA
     Dosage: 3ML 2 X W
  18. CILOSTAZOL [Concomitant]
     Indication: HYPERTENSION
     Dates: start: 20070101
  19. LORAZEPAM [Concomitant]
     Indication: SEDATIVE THERAPY

REACTIONS (10)
  - HYPERTENSION [None]
  - NERVOUSNESS [None]
  - RENAL FAILURE [None]
  - FEELING ABNORMAL [None]
  - OSTEOARTHRITIS [None]
  - INFLAMMATION [None]
  - HYPOGLYCAEMIA [None]
  - PAIN IN EXTREMITY [None]
  - ANXIETY [None]
  - VISUAL IMPAIRMENT [None]
